FAERS Safety Report 9918938 (Version 6)
Quarter: 2014Q2

REPORT INFORMATION
  Report Type: Spontaneous
  Country: US (occurrence: US)
  Receive Date: 20140224
  Receipt Date: 20140602
  Transmission Date: 20141212
  Serious: Yes (Other)
  Sender: FDA-Public Use
  Company Number: US-PFIZER INC-2014049815

PATIENT
  Age: 70 Year
  Sex: Male

DRUGS (10)
  1. NEURONTIN [Suspect]
     Indication: INSOMNIA
     Dosage: 300 MG, 1X/DAY
     Route: 048
     Dates: start: 20130926, end: 20131009
  2. NEURONTIN [Suspect]
     Indication: PERIODIC LIMB MOVEMENT DISORDER
     Dosage: 600 MG, 1X/DAY
     Route: 048
     Dates: start: 20131010, end: 20131112
  3. NEURONTIN [Suspect]
     Indication: SLEEP DISORDER
     Dosage: 900 MG, ONE -TWO DAILY
     Route: 048
     Dates: start: 20131113, end: 20131117
  4. NEURONTIN [Suspect]
     Dosage: 600 MG, 1X/DAY
     Route: 048
     Dates: start: 20131118, end: 20131127
  5. NEURONTIN [Suspect]
     Dosage: 300 MG, 1X/DAY
     Route: 048
     Dates: start: 20131128, end: 20131130
  6. BENADRYL [Concomitant]
     Indication: SLEEP DISORDER
     Dosage: UNK
     Dates: start: 20130928, end: 20131205
  7. DIPHENHYDRAMINE [Concomitant]
     Indication: SLEEP DISORDER
     Dosage: 50 MG, 1X/DAY
     Dates: start: 20130928, end: 20131207
  8. CLONAZEPAM [Concomitant]
     Indication: PERIODIC LIMB MOVEMENT DISORDER
     Dosage: 1.5 MG, DAILY
     Dates: start: 20130608
  9. CLONAZEPAM [Concomitant]
     Indication: SLEEP DISORDER
     Dosage: 1 MG, DAILY
     Dates: start: 20130926
  10. ROPINIROLE [Concomitant]
     Indication: SLEEP DISORDER
     Dosage: 1-2 MG, DAILY
     Dates: start: 20131110, end: 20131205

REACTIONS (12)
  - Intentional product misuse [Unknown]
  - Myocardial infarction [Unknown]
  - Tricuspid valve incompetence [Not Recovered/Not Resolved]
  - Right ventricular failure [Not Recovered/Not Resolved]
  - Cardiac failure [Not Recovered/Not Resolved]
  - Left atrial dilatation [Not Recovered/Not Resolved]
  - Right atrial dilatation [Not Recovered/Not Resolved]
  - Oedema peripheral [Recovering/Resolving]
  - Drug ineffective for unapproved indication [Unknown]
  - Coordination abnormal [Unknown]
  - Accident [Unknown]
  - Exercise tolerance decreased [Not Recovered/Not Resolved]
